FAERS Safety Report 7934937-3 (Version None)
Quarter: 2011Q4

REPORT INFORMATION
  Report Type: 
  Country: None (occurrence: None)
  Receive Date: 20111122
  Receipt Date: 20111117
  Transmission Date: 20120403
  Serious: Yes (Hospitalization)
  Sender: FDA-Public Use
  Company Number: JP-ABBOTT-10P-087-0620278-00

PATIENT
  Sex: Female
  Weight: 50 kg

DRUGS (4)
  1. CLARITHROMYCIN [Suspect]
     Indication: NASOPHARYNGITIS
  2. CLARITHROMYCIN [Suspect]
     Indication: BRONCHITIS
     Route: 048
     Dates: start: 20100104
  3. LOXOPROFEN SODIUM [Concomitant]
     Indication: NASOPHARYNGITIS
     Route: 048
     Dates: start: 20100104, end: 20100106
  4. DASEN [Concomitant]
     Indication: NASOPHARYNGITIS
     Route: 048
     Dates: start: 20100104, end: 20100106

REACTIONS (1)
  - INTERSTITIAL LUNG DISEASE [None]
